FAERS Safety Report 9369171 (Version 2)
Quarter: 2013Q3

REPORT INFORMATION
  Report Type: Report from Study
  Country: NL (occurrence: NL)
  Receive Date: 20130626
  Receipt Date: 20130927
  Transmission Date: 20140515
  Serious: Yes (Disabling, Other)
  Sender: FDA-Public Use
  Company Number: PHHY2013NL065329

PATIENT
  Age: 55 Year
  Sex: Female

DRUGS (9)
  1. ZOMETA [Suspect]
     Indication: BREAST CANCER METASTATIC
     Dosage: 5 MG/ 100 ML ONCE EVERY 12 WEEKS
     Route: 042
  2. ZOMETA [Suspect]
     Dosage: 5 MG/ 100 ML ONCE EVERY 12 WEEKS
     Route: 042
     Dates: start: 20120709
  3. ZOMETA [Suspect]
     Dosage: 5 MG/ 100 ML ONCE EVERY 12 WEEKS
     Route: 042
     Dates: start: 20130318
  4. ZOMETA [Suspect]
     Dosage: 5 MG/ 100 ML ONCE EVERY 12 WEEKS
     Route: 042
     Dates: start: 20130624
  5. ZOMETA [Suspect]
     Dosage: UNK UKN, UNK EVERY 3 MONTHS
     Route: 042
     Dates: start: 201207, end: 201307
  6. FENTANYL [Concomitant]
     Dosage: 75 UG, EVERY 72 HOURS
  7. OXYNORM [Concomitant]
     Dosage: 20 MG, 4 TIMES A DAY
  8. PARACETAMOL [Concomitant]
     Dosage: 500 MG, 6 TIMES A DAY
  9. ESOMEPRAZOLE [Concomitant]
     Dosage: 20 MG, QD

REACTIONS (3)
  - Paraplegia [Not Recovered/Not Resolved]
  - Asthenia [Not Recovered/Not Resolved]
  - Spinal compression fracture [Unknown]
